FAERS Safety Report 11572577 (Version 5)
Quarter: 2015Q4

REPORT INFORMATION
  Report Type: Spontaneous
  Country: US (occurrence: US)
  Receive Date: 20150929
  Receipt Date: 20151204
  Transmission Date: 20160304
  Serious: Yes (Other)
  Sender: FDA-Public Use
  Company Number: US-PFIZER INC-2015320847

PATIENT
  Age: 81 Year
  Sex: Female

DRUGS (4)
  1. COREG [Concomitant]
     Active Substance: CARVEDILOL
     Indication: BLOOD PRESSURE ABNORMAL
     Dosage: UNK
     Dates: start: 20090120
  2. PREMARIN [Suspect]
     Active Substance: ESTROGENS, CONJUGATED
     Indication: HORMONE REPLACEMENT THERAPY
     Dosage: 3 MG, 1X/DAY
     Route: 048
     Dates: start: 199501
  3. METOPROLOL [Concomitant]
     Active Substance: METOPROLOL
     Indication: BLOOD PRESSURE ABNORMAL
     Dosage: 75 MG, 2X/DAY
  4. AMLODIPINE [Concomitant]
     Active Substance: AMLODIPINE BESYLATE
     Indication: BLOOD PRESSURE ABNORMAL
     Dosage: 5MG, HALF A TABLET IN MORNING AND A FULL TABLET AT NIGHT

REACTIONS (9)
  - Vertigo [Recovering/Resolving]
  - Tremor [Unknown]
  - Hearing impaired [Not Recovered/Not Resolved]
  - Dizziness [Unknown]
  - Ear discomfort [Unknown]
  - Vision blurred [Unknown]
  - Viral infection [Unknown]
  - Nausea [Unknown]
  - Balance disorder [Unknown]

NARRATIVE: CASE EVENT DATE: 201308
